FAERS Safety Report 7705418-7 (Version None)
Quarter: 2011Q3

REPORT INFORMATION
  Report Type: 
  Country: None (occurrence: None)
  Receive Date: 20110818
  Receipt Date: 20110802
  Transmission Date: 20111222
  Serious: Yes (Hospitalization, Other)
  Sender: FDA-Public Use
  Company Number: 2011MA010862

PATIENT
  Age: 48 Year
  Sex: Female

DRUGS (1)
  1. VENLAFAXINE HYDROCHLORIDE [Suspect]
     Indication: SUICIDE ATTEMPT
     Dosage: 7.5 GRAMS

REACTIONS (22)
  - INTENTIONAL OVERDOSE [None]
  - LOSS OF CONSCIOUSNESS [None]
  - MOTOR DYSFUNCTION [None]
  - REGRESSIVE BEHAVIOUR [None]
  - DEMENTIA [None]
  - CEREBRAL HYPOPERFUSION [None]
  - INCOHERENT [None]
  - GRAND MAL CONVULSION [None]
  - NEGATIVISM [None]
  - STEREOTYPY [None]
  - THINKING ABNORMAL [None]
  - MUSCLE RIGIDITY [None]
  - LACK OF SPONTANEOUS SPEECH [None]
  - COGNITIVE DISORDER [None]
  - SCREAMING [None]
  - MENTAL DISORDER [None]
  - GAIT DISTURBANCE [None]
  - MEMORY IMPAIRMENT [None]
  - SUICIDE ATTEMPT [None]
  - DISORIENTATION [None]
  - HYPERREFLEXIA [None]
  - DYSCALCULIA [None]
